FAERS Safety Report 7933058-3 (Version None)
Quarter: 2011Q4

REPORT INFORMATION
  Report Type: 
  Country: None (occurrence: None)
  Receive Date: 20111122
  Receipt Date: 20111114
  Transmission Date: 20120403
  Serious: Yes (Hospitalization)
  Sender: FDA-Public Use
  Company Number: PHHY2011ES100674

PATIENT
  Age: 56 Year
  Sex: Female

DRUGS (1)
  1. ALLOPURINOL [Suspect]
     Indication: HYPERURICAEMIA
     Dosage: UNK UKN, UNK

REACTIONS (10)
  - HYPOTENSION [None]
  - DYSPNOEA [None]
  - RASH [None]
  - RASH MACULAR [None]
  - BLISTER [None]
  - NIKOLSKY'S SIGN [None]
  - TOXIC EPIDERMAL NECROLYSIS [None]
  - RESPIRATORY FAILURE [None]
  - RENAL FAILURE [None]
  - OROPHARYNGEAL BLISTERING [None]
